FAERS Safety Report 7164231-2 (Version None)
Quarter: 2010Q4

REPORT INFORMATION
  Report Type: 
  Country: None (occurrence: None)
  Receive Date: 20101123
  Receipt Date: 20100819
  Transmission Date: 20110411
  Serious: No
  Sender: FDA-Public Use
  Company Number: 8040044

PATIENT
  Sex: Male
  Weight: 117.9 kg

DRUGS (12)
  1. CERTOLIZUMAB PEGOL [Suspect]
     Indication: CROHN'S DISEASE
     Dosage: SUBCUTANEOUS, 300MG 1X/2 WEEKS SUBCUTANEOUS, 400 G, FREQUENCY 28
     Route: 058
     Dates: start: 20080801, end: 20081101
  2. CERTOLIZUMAB PEGOL [Suspect]
     Indication: CROHN'S DISEASE
     Dosage: SUBCUTANEOUS, 300MG 1X/2 WEEKS SUBCUTANEOUS, 400 G, FREQUENCY 28
     Route: 058
     Dates: start: 20080904
  3. CERTOLIZUMAB PEGOL [Suspect]
     Indication: CROHN'S DISEASE
     Dosage: SUBCUTANEOUS, 300MG 1X/2 WEEKS SUBCUTANEOUS, 400 G, FREQUENCY 28
     Route: 058
     Dates: start: 20100501
  4. WELLBUTRIN [Concomitant]
  5. XANAX [Concomitant]
  6. NORCO [Concomitant]
  7. NEURONTIN [Concomitant]
  8. LYRICA [Concomitant]
  9. PAXIL [Concomitant]
  10. FLEXERIL [Concomitant]
  11. ACETAMINOPHEN AND HYDROCODONE BITARTRATE [Concomitant]
  12. CODEINE CONTIN [Concomitant]

REACTIONS (14)
  - ABDOMINAL PAIN [None]
  - ABNORMAL FAECES [None]
  - ASTHENIA [None]
  - BACK PAIN [None]
  - BOWEL MOVEMENT IRREGULARITY [None]
  - BURNOUT SYNDROME [None]
  - FATIGUE [None]
  - FLATULENCE [None]
  - GASTROOESOPHAGEAL REFLUX DISEASE [None]
  - HEADACHE [None]
  - HYPERSOMNIA [None]
  - PAIN [None]
  - PAIN IN EXTREMITY [None]
  - PRURITUS [None]
